FAERS Safety Report 4852223-5 (Version None)
Quarter: 2005Q4

REPORT INFORMATION
  Report Type: 
  Country: None (occurrence: None)
  Receive Date: 20051123
  Receipt Date: 20051014
  Transmission Date: 20060501
  Serious: Yes (Hospitalization)
  Sender: FDA-Public Use
  Company Number: 2005-03930

PATIENT
  Age: 70 Year
  Sex: Female

DRUGS (1)
  1. INFED [Suspect]
     Indication: IRON DEFICIENCY ANAEMIA
     Dosage: 100 MG UNDILUTED OVER 5 MIN X 1, INTRAVENOUS
     Route: 042
     Dates: start: 20051005

REACTIONS (5)
  - COUGH [None]
  - DYSPNOEA [None]
  - ERYTHEMA [None]
  - NAUSEA [None]
  - VOMITING [None]
